FAERS Safety Report 5502860-X (Version None)
Quarter: 2007Q4

REPORT INFORMATION
  Report Type: 
  Country: None (occurrence: None)
  Receive Date: 20071031
  Receipt Date: 20071023
  Transmission Date: 20080405
  Serious: Yes (Hospitalization)
  Sender: FDA-Public Use
  Company Number: FR-BRISTOL-MYERS SQUIBB COMPANY-13960562

PATIENT
  Age: 47 Year
  Sex: Male

DRUGS (4)
  1. LYSODREN [Suspect]
     Indication: ADRENOCORTICAL CARCINOMA
     Dates: start: 20061110
  2. STREPTOZOCIN [Suspect]
     Indication: ADRENOCORTICAL CARCINOMA
     Route: 042
     Dates: start: 20070921, end: 20070925
  3. HYDROCORTISONE [Concomitant]
  4. DUROGESIC [Concomitant]

REACTIONS (1)
  - PROTEINURIA [None]
